FAERS Safety Report 19089033 (Version 1)
Quarter: 2021Q2

REPORT INFORMATION
  Report Type: Spontaneous
  Country: ES (occurrence: ES)
  Receive Date: 20210403
  Receipt Date: 20210403
  Transmission Date: 20210717
  Serious: Yes (Hospitalization, Other)
  Sender: FDA-Public Use
  Company Number: ES-ORGANON-O2103ESP003189

PATIENT
  Age: 27 Year
  Sex: Female

DRUGS (3)
  1. ORGALUTRAN [Suspect]
     Active Substance: GANIRELIX ACETATE
     Indication: OOCYTE HARVEST
     Dosage: VARIABLE PROTOCOL
  2. ELONVA [Suspect]
     Active Substance: CORIFOLLITROPIN ALFA
     Indication: OOCYTE HARVEST
     Dosage: 150 (RANDOM, +75 HMG)
  3. PUREGON [FOLLITROPIN BETA] [Suspect]
     Active Substance: FOLLITROPIN BETA
     Indication: OOCYTE HARVEST
     Dosage: 150 (DAY +8, +75 HMG)

REACTIONS (4)
  - Abdominal distension [Unknown]
  - Ascites [Unknown]
  - Ovarian enlargement [Unknown]
  - Ovarian germ cell teratoma [Unknown]
